FAERS Safety Report 8452755-7 (Version None)
Quarter: 2012Q2

REPORT INFORMATION
  Report Type: 
  Country: None (occurrence: None)
  Receive Date: 20120620
  Receipt Date: 20120424
  Transmission Date: 20120825
  Serious: No
  Sender: FDA-Public Use
  Company Number: US-VERTEX PHARMACEUTICALS INC.-AE-2012-005940

PATIENT
  Sex: Male

DRUGS (5)
  1. METFORMIN HCL [Concomitant]
  2. LOSARTAN POTASSIUM [Concomitant]
  3. PEGASYS [Concomitant]
     Indication: HEPATITIS C
     Route: 058
  4. INCIVEK [Suspect]
     Indication: HEPATITIS C
     Route: 048
  5. RIBAVIRIN [Concomitant]
     Indication: HEPATITIS C

REACTIONS (1)
  - JAUNDICE [None]
